FAERS Safety Report 18106939 (Version 4)
Quarter: 2020Q3

REPORT INFORMATION
  Report Type: Spontaneous
  Country: RO (occurrence: RO)
  Receive Date: 20200803
  Receipt Date: 20200817
  Transmission Date: 20201103
  Serious: Yes (Hospitalization, Other)
  Sender: FDA-Public Use
  Company Number: NVSC2020RO214658

PATIENT
  Age: 56 Year
  Sex: Female

DRUGS (13)
  1. DABIGATRAN [Suspect]
     Active Substance: DABIGATRAN
     Indication: DEEP VEIN THROMBOSIS
  2. ENOXAPARIN [Suspect]
     Active Substance: ENOXAPARIN
     Indication: PRODUCT USED FOR UNKNOWN INDICATION
     Dosage: UNK
     Route: 065
  3. CLOPIDOGREL [Interacting]
     Active Substance: CLOPIDOGREL BISULFATE
     Indication: ACUTE MYOCARDIAL INFARCTION
     Dosage: UNK
     Route: 065
  4. DABIGATRAN [Suspect]
     Active Substance: DABIGATRAN
     Indication: ACUTE MYOCARDIAL INFARCTION
  5. CLOPIDOGREL [Interacting]
     Active Substance: CLOPIDOGREL BISULFATE
     Indication: THROMBOSIS PROPHYLAXIS
  6. FONDAPARINUX [Interacting]
     Active Substance: FONDAPARINUX
     Indication: PRODUCT USED FOR UNKNOWN INDICATION
     Dosage: 7.5 MG, QD
     Route: 065
  7. HEPARIN [Suspect]
     Active Substance: HEPARIN SODIUM
     Indication: DEEP VEIN THROMBOSIS
     Dosage: UNK
     Route: 042
  8. ACETYLSALICYLIC ACID [Interacting]
     Active Substance: ASPIRIN
     Indication: ACUTE MYOCARDIAL INFARCTION
     Dosage: UNK
     Route: 065
  9. ELTROMBOPAG [Suspect]
     Active Substance: ELTROMBOPAG
     Indication: IMMUNE THROMBOCYTOPENIA
     Dosage: UNK
     Route: 065
  10. PLATELETS [Concomitant]
     Active Substance: HUMAN PLATELET, ALLOGENIC
     Indication: PRODUCT USED FOR UNKNOWN INDICATION
     Dosage: UNK
     Route: 065
  11. DEXAMETHASONE. [Concomitant]
     Active Substance: DEXAMETHASONE
     Indication: PRODUCT USED FOR UNKNOWN INDICATION
     Dosage: UNK
     Route: 065
  12. DABIGATRAN [Suspect]
     Active Substance: DABIGATRAN
     Indication: THROMBOSIS PROPHYLAXIS
     Dosage: 150 MG, BID
     Route: 048
  13. FONDAPARINUX [Interacting]
     Active Substance: FONDAPARINUX
     Dosage: 2.5 MG, QD
     Route: 065

REACTIONS (10)
  - Angina pectoris [Unknown]
  - Acute myocardial infarction [Unknown]
  - Thrombosis [Recovered/Resolved]
  - Pulmonary embolism [Recovered/Resolved]
  - Chest pain [Unknown]
  - Deep vein thrombosis [Recovered/Resolved]
  - Thrombocytopenia [Recovering/Resolving]
  - Menorrhagia [Recovered/Resolved]
  - Drug ineffective [Unknown]
  - Labelled drug-drug interaction medication error [Unknown]
